FAERS Safety Report 6119256-2 (Version None)
Quarter: 2009Q1

REPORT INFORMATION
  Report Type: 
  Country: None (occurrence: None)
  Receive Date: 20090316
  Receipt Date: 20090305
  Transmission Date: 20090719
  Serious: Yes (Hospitalization)
  Sender: FDA-Public Use
  Company Number: US-ELI_LILLY_AND_COMPANY-US200903001630

PATIENT
  Sex: Male

DRUGS (2)
  1. GEMZAR [Suspect]
     Indication: SARCOMA
     Dosage: 900 MG, Q 3 WEEKS
     Route: 042
     Dates: start: 20090201
  2. DOCETAXEL [Concomitant]
     Indication: SARCOMA
     Dosage: 100 MG/M2, Q 3 WEEKS
     Route: 042
     Dates: start: 20090201, end: 20090219

REACTIONS (1)
  - PLEURAL EFFUSION [None]
